FAERS Safety Report 6894004-7 (Version None)
Quarter: 2010Q3

REPORT INFORMATION
  Report Type: 
  Country: None (occurrence: None)
  Receive Date: 20100802
  Receipt Date: 20100722
  Transmission Date: 20110219
  Serious: Yes (Other)
  Sender: FDA-Public Use
  Company Number: US-RANBAXY-2010US-36181

PATIENT

DRUGS (7)
  1. CALAN [Suspect]
     Indication: HYPERTENSION
     Dosage: 240 MG, QD
     Route: 065
     Dates: start: 19970101
  2. CALAN [Suspect]
     Indication: MIGRAINE
  3. LISINOPRIL [Concomitant]
     Indication: BLOOD PRESSURE
     Dosage: UNK
     Route: 065
  4. FENOFIBRATE [Concomitant]
     Indication: PRODUCT USED FOR UNKNOWN INDICATION
     Dosage: UNK
     Route: 065
  5. ANTARA (MICRONIZED) [Concomitant]
     Indication: DIVERTICULITIS
     Route: 065
  6. HYOSCYAMINE [Concomitant]
     Indication: DIVERTICULITIS
     Route: 065
  7. OMACOR [Concomitant]
     Indication: BLOOD CHOLESTEROL INCREASED
     Route: 065

REACTIONS (6)
  - BLOOD CHOLESTEROL INCREASED [None]
  - BLOOD PRESSURE INCREASED [None]
  - HYPERSOMNIA [None]
  - LETHARGY [None]
  - MIGRAINE [None]
  - PRODUCT SUBSTITUTION ISSUE [None]
